FAERS Safety Report 5349615-7 (Version None)
Quarter: 2007Q2

REPORT INFORMATION
  Report Type: 
  Country: None (occurrence: None)
  Receive Date: 20070607
  Receipt Date: 20070601
  Transmission Date: 20071010
  Serious: Yes (Hospitalization)
  Sender: FDA-Public Use
  Company Number: US-JNJFOC-20070601062

PATIENT
  Age: 76 Year
  Sex: Female
  Weight: 86.18 kg

DRUGS (8)
  1. RISPERDAL CONSTA [Suspect]
     Indication: SCHIZOAFFECTIVE DISORDER
     Route: 030
  2. LASIX [Concomitant]
  3. POTASSIUM ACETATE [Concomitant]
  4. IMDUR [Concomitant]
  5. LABITOL [Concomitant]
  6. KLONOPIN [Concomitant]
  7. AMBIEN [Concomitant]
  8. ZETIA [Concomitant]

REACTIONS (4)
  - ABNORMAL BEHAVIOUR [None]
  - AGITATION [None]
  - HALLUCINATION [None]
  - INCOHERENT [None]
